FAERS Safety Report 4429401-2 (Version None)
Quarter: 2004Q3

REPORT INFORMATION
  Report Type: 
  Country: None (occurrence: None)
  Receive Date: 20040816
  Receipt Date: 20040803
  Transmission Date: 20050211
  Serious: Yes (Hospitalization, Other)
  Sender: FDA-Public Use
  Company Number: 2004053175

PATIENT
  Age: 78 Year
  Sex: Male
  Weight: 60 kg

DRUGS (14)
  1. FLUCAM (AMPIROXICAM) [Suspect]
     Indication: OEDEMA PERIPHERAL
     Dosage: 27 MG (27 MG, QD), ORAL
     Route: 048
     Dates: start: 20040626, end: 20040705
  2. ALOSEN (ACHILLEA, RUBIA ROOT TINCTURE, SENNA FRUIT, SENNA LEAF, TARAXA [Concomitant]
  3. CALCIM POLYSTYTRENE SULFONATE [Concomitant]
  4. ALUMNIUM HYDROXIDE GEL, DRIED [Concomitant]
  5. NIFEDIPINE [Concomitant]
  6. AMEZINIUM METILSULFATE [Concomitant]
  7. CALCIUM CARBONATE [Concomitant]
  8. ALL OTHER THERAPEUTIC PRODUCTS [Concomitant]
  9. LOXOPROFEN SODIUM [Concomitant]
  10. REBAMIPIDE [Concomitant]
  11. HACHIZAULE (SODIUM BICARBONATE, SODIUM GUALENATE) [Concomitant]
  12. ALL OTHER THERAPEUTIC PRODUCTS [Concomitant]
  13. KETOPROFEN [Concomitant]
  14. AMOROLFINE [Concomitant]

REACTIONS (1)
  - EOSINOPHILIA [None]
